FAERS Safety Report 5034040-9 (Version None)
Quarter: 2006Q2

REPORT INFORMATION
  Report Type: 
  Country: None (occurrence: None)
  Receive Date: 20060620
  Receipt Date: 20060608
  Transmission Date: 20061013
  Serious: Yes (Death, Hospitalization)
  Sender: FDA-Public Use
  Company Number: FABR-11450

PATIENT
  Age: 53 Year
  Sex: Male
  Weight: 40 kg

DRUGS (1)
  1. FABRAZYME [Suspect]
     Indication: FABRY'S DISEASE
     Dosage: 35 MG Q2WKS IV
     Route: 042
     Dates: start: 20041220, end: 20051205

REACTIONS (5)
  - CACHEXIA [None]
  - CATHETER RELATED INFECTION [None]
  - DECUBITUS ULCER [None]
  - ENDOCARDITIS STAPHYLOCOCCAL [None]
  - MALNUTRITION [None]
